FAERS Safety Report 6803356-5 (Version None)
Quarter: 2010Q2

REPORT INFORMATION
  Report Type: 
  Country: None (occurrence: None)
  Receive Date: 20100628
  Receipt Date: 20100618
  Transmission Date: 20101027
  Serious: Yes (Other)
  Sender: FDA-Public Use
  Company Number: JP-PFIZER INC-2010076130

PATIENT
  Age: 85 Year
  Sex: Female

DRUGS (5)
  1. NORVASC [Suspect]
     Dosage: 5 MG, 1X/DAY
     Route: 048
  2. ASPIRIN [Concomitant]
  3. VITAMIN E [Concomitant]
  4. ADJUST-A [Concomitant]
  5. MARZULENE [Concomitant]

REACTIONS (1)
  - ANOSMIA [None]
